FAERS Safety Report 10025854 (Version 1)
Quarter: 2014Q1

REPORT INFORMATION
  Report Type: Spontaneous
  Country: CH (occurrence: None)
  Receive Date: 20140304
  Receipt Date: 20140304
  Transmission Date: 20141002
  Serious: Yes (Hospitalization)
  Sender: FDA-Public Use
  Company Number: VAL_03028_2014

PATIENT
  Age: 66 Year
  Sex: Female

DRUGS (4)
  1. METOPROLOL (METOPROLOL) [Suspect]
     Route: 048
  2. SINTROM (SINTROM-ACENOCOUMAROL) [Suspect]
     Indication: PRODUCT USED FOR UNKNOWN INDICATION
     Route: 048
     Dates: start: 201308, end: 20131231
  3. DIGOXIN (DIGOXIN) [Suspect]
     Indication: ARRHYTHMIA SUPRAVENTRICULAR
     Route: 048
     Dates: start: 201308, end: 20140209
  4. CORDARONE (CORDARONE) [Suspect]
     Indication: ARRHYTHMIA SUPRAVENTRICULAR
     Route: 048
     Dates: start: 20131207

REACTIONS (13)
  - Fall [None]
  - Subdural haematoma [None]
  - Incorrect drug administration duration [None]
  - Asthenia [None]
  - Nausea [None]
  - Vomiting [None]
  - Renal failure acute [None]
  - Syncope [None]
  - Electrocardiogram ST segment depression [None]
  - Electrocardiogram T wave inversion [None]
  - International normalised ratio increased [None]
  - Cardioactive drug level increased [None]
  - Overdose [None]
